FAERS Safety Report 25787893 (Version 2)
Quarter: 2025Q4

REPORT INFORMATION
  Report Type: Report from Study
  Country: US (occurrence: US)
  Receive Date: 20250910
  Receipt Date: 20251009
  Transmission Date: 20260118
  Serious: Yes (Hospitalization, Other)
  Sender: EMD SERONO INC
  Company Number: US-Merck Healthcare KGaA-2025045028

PATIENT
  Sex: Female

DRUGS (2)
  1. MAVENCLAD [Suspect]
     Active Substance: CLADRIBINE
     Indication: Multiple sclerosis
     Dosage: YEAR ONE MONTH ONE THERAPY
     Dates: start: 20241029, end: 20241102
  2. MAVENCLAD [Suspect]
     Active Substance: CLADRIBINE
     Dosage: YEAR ONE MONTH TWO THERAPY
     Dates: start: 20241127, end: 20241201

REACTIONS (6)
  - Blood pressure fluctuation [Unknown]
  - Palpitations [Unknown]
  - Dizziness [Unknown]
  - Loss of consciousness [Unknown]
  - Urinary tract infection [Recovered/Resolved]
  - Weight decreased [Unknown]
